FAERS Safety Report 25725838 (Version 3)
Quarter: 2025Q3

REPORT INFORMATION
  Report Type: Spontaneous
  Country: US (occurrence: US)
  Receive Date: 20250826
  Receipt Date: 20250922
  Transmission Date: 20251020
  Serious: Yes (Other)
  Sender: BAYER HEALTHCARE PHARMACEUTICALS INC.
  Company Number: US-BAYER-2025A111711

PATIENT
  Age: 45 Year
  Sex: Female
  Weight: 55.782 kg

DRUGS (1)
  1. MIRENA [Suspect]
     Active Substance: LEVONORGESTREL
     Indication: Gynaecological disorder prophylaxis
     Dosage: 20?G/DAY
     Route: 015
     Dates: start: 20250819, end: 20250819

REACTIONS (4)
  - Uterine perforation [Recovered/Resolved]
  - Device deployment issue [None]
  - Complication of device insertion [None]
  - Device use issue [None]

NARRATIVE: CASE EVENT DATE: 20250819
